FAERS Safety Report 8713528 (Version 4)
Quarter: 2012Q4

REPORT INFORMATION
  Report Type: 
  Country: US (occurrence: US)
  Receive Date: 20120808
  Receipt Date: 20121026
  Transmission Date: 20130627
  Serious: Yes (Other)
  Sender: FDA-Public Use
  Company Number: US-JNJFOC-20120701817

PATIENT
  Age: 35 Year
  Sex: Female

DRUGS (5)
  1. TOPAMAX [Suspect]
     Indication: BIPOLAR DISORDER
     Route: 048
  2. TOPAMAX [Suspect]
     Indication: BIPOLAR DISORDER
     Route: 048
     Dates: start: 20040218, end: 20120714
  3. KLONOPIN [Suspect]
     Indication: DEPRESSION
     Route: 048
  4. SINGULAIR [Suspect]
     Indication: PRODUCT USED FOR UNKNOWN INDICATION
     Route: 048
  5. Z PAK [Suspect]
     Indication: RESPIRATORY TRACT CONGESTION
     Route: 065

REACTIONS (7)
  - Foetal death [Recovered/Resolved]
  - Oligohydramnios [Recovered/Resolved]
  - Exposure during pregnancy [Recovered/Resolved]
  - Insomnia [Unknown]
  - Depression [Unknown]
  - Anxiety [Unknown]
  - Stress [Unknown]
